FAERS Safety Report 7144987-5 (Version None)
Quarter: 2010Q4

REPORT INFORMATION
  Report Type: 
  Country: None (occurrence: None)
  Receive Date: 20101123
  Receipt Date: 20101021
  Transmission Date: 20110411
  Serious: No
  Sender: FDA-Public Use
  Company Number: 020719

PATIENT
  Sex: Male

DRUGS (2)
  1. CIMZIA [Suspect]
     Dosage: SUBCUTANEOUS
     Route: 058
     Dates: start: 20100801
  2. PREDNISONE [Concomitant]

REACTIONS (2)
  - FATIGUE [None]
  - SINUSITIS [None]
